FAERS Safety Report 6579001-3 (Version None)
Quarter: 2010Q1

REPORT INFORMATION
  Report Type: 
  Country: None (occurrence: None)
  Receive Date: 20100212
  Receipt Date: 20100201
  Transmission Date: 20100710
  Serious: Yes (Other)
  Sender: FDA-Public Use
  Company Number: US-JNJFOC-20091207794

PATIENT
  Sex: Female

DRUGS (11)
  1. REMICADE [Suspect]
     Indication: RHEUMATOID ARTHRITIS
     Dosage: TOTAL 13 DOSES RECEIVED
     Route: 042
  2. REMICADE [Suspect]
     Route: 042
  3. METHOTREXATE [Concomitant]
     Route: 048
  4. FOLIC ACID [Concomitant]
     Route: 048
  5. DOCUSATE SODIUM [Concomitant]
     Route: 048
  6. ACYCLOVIR [Concomitant]
     Indication: ORAL HERPES
     Route: 048
  7. HYDROCORTISONE CREAM [Concomitant]
  8. FLUOXETINE [Concomitant]
     Route: 048
  9. MULTIPLE VITAMINS [Concomitant]
     Route: 048
  10. TYLENOL-500 [Concomitant]
     Indication: PREMEDICATION
     Route: 048
  11. BENADRYL [Concomitant]
     Indication: PREMEDICATION
     Route: 048

REACTIONS (7)
  - BACK PAIN [None]
  - CHILLS [None]
  - DYSPNOEA [None]
  - FACE OEDEMA [None]
  - FLUSHING [None]
  - IMPAIRED HEALING [None]
  - INFUSION RELATED REACTION [None]
